FAERS Safety Report 7709519 (Version 2)
Quarter: 2014Q2

REPORT INFORMATION
  Report Type: Report from Study
  Country: US (occurrence: US)
  Receive Date: 20101214
  Receipt Date: 20140513
  Transmission Date: 20141212
  Serious: No
  Sender: FDA-Public Use
  Company Number: US-ASTRAZENECA-2010SE37451

PATIENT
  Age: 76 Year
  Sex: Female
  Weight: 47.2 kg

DRUGS (10)
  1. MORPHINE [Suspect]
     Route: 065
  2. CRESTOR [Suspect]
     Route: 048
  3. NEXIUM [Suspect]
     Indication: GASTROOESOPHAGEAL REFLUX DISEASE
     Route: 048
     Dates: start: 2009
  4. GABAPENTIN [Concomitant]
     Indication: MUSCLE SPASMS
     Route: 048
  5. CITRALINE [Concomitant]
     Indication: RESTLESSNESS
     Route: 048
     Dates: start: 201309
  6. ZYRTEC [Concomitant]
     Indication: MULTIPLE ALLERGIES
     Route: 048
  7. ALPRAZOLAM [Concomitant]
     Indication: ANXIETY
     Dosage: 5MG 1-1 1/2 TAB TID PRN
     Route: 048
  8. TRAMADOL [Concomitant]
     Indication: PAIN
     Dosage: 50MG Q12H PRN
     Route: 048
     Dates: start: 2012
  9. MUCINEX OTC [Concomitant]
     Indication: MULTIPLE ALLERGIES
     Dosage: PRN
     Route: 048
  10. RHINOCORT [Concomitant]

REACTIONS (7)
  - Dyskinesia [Unknown]
  - Malaise [Unknown]
  - Malaise [Unknown]
  - Drug hypersensitivity [Unknown]
  - Nausea [Unknown]
  - Abdominal discomfort [Unknown]
  - Drug dose omission [Unknown]
